FAERS Safety Report 23274231 (Version 1)
Quarter: 2023Q4

REPORT INFORMATION
  Report Type: Spontaneous
  Country: IN (occurrence: IN)
  Receive Date: 20231208
  Receipt Date: 20231208
  Transmission Date: 20240110
  Serious: Yes (Death, Hospitalization, Other)
  Sender: FDA-Public Use
  Company Number: IN-AJANTA-2023AJA00264

PATIENT
  Age: 47 Year
  Sex: Male

DRUGS (10)
  1. CLARITHROMYCIN [Suspect]
     Active Substance: CLARITHROMYCIN
     Indication: Mycobacterium abscessus infection
     Route: 048
  2. CLARITHROMYCIN [Suspect]
     Active Substance: CLARITHROMYCIN
     Indication: Endocarditis
  3. IMIPENEM [Suspect]
     Active Substance: IMIPENEM
     Indication: Mycobacterium abscessus infection
  4. IMIPENEM [Suspect]
     Active Substance: IMIPENEM
     Indication: Endocarditis
  5. AMIKACIN [Suspect]
     Active Substance: AMIKACIN
     Indication: Mycobacterium abscessus infection
  6. AMIKACIN [Suspect]
     Active Substance: AMIKACIN
     Indication: Endocarditis
  7. FAROPENEM [Concomitant]
     Active Substance: FAROPENEM
  8. LEVOFLOXACIN [Concomitant]
     Active Substance: LEVOFLOXACIN
  9. CIPROFLOXACIN [Concomitant]
     Active Substance: CIPROFLOXACIN
  10. AMOXICILLIN\CLAVULANATE POTASSIUM [Concomitant]
     Active Substance: AMOXICILLIN\CLAVULANATE POTASSIUM

REACTIONS (8)
  - Pancytopenia [Fatal]
  - Treatment noncompliance [Unknown]
  - Bacteraemia [Fatal]
  - Haematemesis [Fatal]
  - Haematochezia [Fatal]
  - Meningitis bacterial [Fatal]
  - Renal failure [Fatal]
  - Multiple organ dysfunction syndrome [Fatal]
